FAERS Safety Report 7819064-8 (Version None)
Quarter: 2011Q4

REPORT INFORMATION
  Report Type: 
  Country: None (occurrence: None)
  Receive Date: 20111003
  Receipt Date: 20110921
  Transmission Date: 20120403
  Serious: Yes (Other)
  Sender: FDA-Public Use
  Company Number: CA-145214

PATIENT
  Sex: Male
  Weight: 86 kg

DRUGS (10)
  1. DANAZOL [Concomitant]
  2. DEXAMETHASONE [Concomitant]
  3. WINRHO SDF LIQUID [Suspect]
     Indication: IDIOPATHIC THROMBOCYTOPENIC PURPURA
     Dosage: 75UG/KG TOTAL INTRAVENOUS
     Route: 042
     Dates: start: 20110528, end: 20110528
  4. WINRHO SDF LIQUID [Suspect]
  5. PIPERACILLIN AND TAZOBACTAM [Concomitant]
  6. FUROSEMIDE [Concomitant]
  7. TRANEXAMIC ACID [Concomitant]
  8. IMMUNE GLOBULIN NOS [Concomitant]
  9. NADOLOL [Concomitant]
  10. ACETAMINOPHEN [Concomitant]

REACTIONS (4)
  - OVERDOSE [None]
  - ANAEMIA [None]
  - HAEMOLYSIS [None]
  - BLOOD GLUCOSE INCREASED [None]
